FAERS Safety Report 8793236 (Version 1)
Quarter: 2012Q4

REPORT INFORMATION
  Report Type: 
  Country: CA (occurrence: CA)
  Receive Date: 20120918
  Receipt Date: 20120918
  Transmission Date: 20130627
  Serious: Yes (Life-Threatening)
  Sender: FDA-Public Use
  Company Number: CA-BRISTOL-MYERS SQUIBB COMPANY-16954877

PATIENT
  Sex: Female

DRUGS (3)
  1. ARIPIPRAZOLE [Suspect]
     Indication: MAJOR DEPRESSION
     Route: 048
     Dates: start: 20120417, end: 2012
  2. CLONAZEPAM [Suspect]
  3. CITALOPRAM [Suspect]

REACTIONS (1)
  - Disorientation [Recovering/Resolving]
